FAERS Safety Report 5001747-9 (Version None)
Quarter: 2006Q2

REPORT INFORMATION
  Report Type: 
  Country: None (occurrence: None)
  Receive Date: 20060515
  Receipt Date: 20060505
  Transmission Date: 20061013
  Serious: Yes (Hospitalization)
  Sender: FDA-Public Use
  Company Number: US-JNJFOC-20060502007

PATIENT
  Sex: Female
  Weight: 50.8 kg

DRUGS (14)
  1. DURAGESIC-100 [Suspect]
     Route: 062
  2. ACIPHEX [Concomitant]
     Indication: GASTRIC DISORDER
     Route: 048
  3. COUMADIN [Concomitant]
     Indication: ANTICOAGULANT THERAPY
     Route: 048
  4. DOCUSATE SODIUM [Concomitant]
     Indication: CONSTIPATION
     Route: 048
  5. DOXEPIN HCL [Concomitant]
     Route: 048
  6. FOSAMAX [Concomitant]
     Indication: OSTEOPOROSIS
     Route: 048
  7. LASIX [Concomitant]
     Indication: FLUID RETENTION
     Route: 048
  8. POTASSIUM CHLORIDE [Concomitant]
     Indication: NUTRITIONAL SUPPORT
     Route: 048
  9. METOLAZONE [Concomitant]
     Indication: FLUID RETENTION
     Route: 048
  10. PREDNISONE TAB [Concomitant]
     Indication: LUNG DISORDER
     Route: 048
  11. REGLAN [Concomitant]
     Indication: GASTRIC DISORDER
     Route: 048
  12. TOPROL-XL [Concomitant]
     Route: 048
  13. ZELNORM [Concomitant]
     Indication: GASTROINTESTINAL DISORDER
     Route: 048
  14. SPIRIVA [Concomitant]
     Indication: LUNG DISORDER
     Dosage: 2 PUFFS IN 24 HOURS
     Route: 055

REACTIONS (2)
  - EYE INFLAMMATION [None]
  - SMALL INTESTINAL OBSTRUCTION [None]
